FAERS Safety Report 24315684 (Version 1)
Quarter: 2024Q3

REPORT INFORMATION
  Report Type: Spontaneous
  Country: DE (occurrence: DE)
  Receive Date: 20240913
  Receipt Date: 20240913
  Transmission Date: 20241017
  Serious: Yes (Other)
  Sender: ACCORD
  Company Number: DE-EMA-DD-20240828-7482643-173414

PATIENT

DRUGS (2)
  1. METHOTREXATE [Suspect]
     Active Substance: METHOTREXATE
     Indication: Progressive facial hemiatrophy
     Dosage: 15 MG/M2, QW
  2. MYCOPHENOLIC ACID [Suspect]
     Active Substance: MYCOPHENOLIC ACID
     Indication: Progressive facial hemiatrophy
     Dosage: 1200 MG, QD

REACTIONS (2)
  - Progressive facial hemiatrophy [Unknown]
  - Condition aggravated [Unknown]
